FAERS Safety Report 22608836 (Version 1)
Quarter: 2023Q2

REPORT INFORMATION
  Report Type: Spontaneous
  Country: BE (occurrence: BE)
  Receive Date: 20230616
  Receipt Date: 20230616
  Transmission Date: 20230721
  Serious: Yes (Other)
  Sender: FDA-Public Use
  Company Number: BE-FAMHP-DHH-N2023-120389

PATIENT

DRUGS (1)
  1. ZOLPIDEM TARTRATE [Suspect]
     Active Substance: ZOLPIDEM TARTRATE
     Indication: Product used for unknown indication
     Dosage: 4 BOXES OF ZOLPIDEM THIS 05/22, 3 BOXES ON 05/17, 4 BOXES ON 05/12
     Route: 065

REACTIONS (2)
  - Drug abuse [Unknown]
  - Pharmaceutical nomadism [Unknown]
